FAERS Safety Report 24355894 (Version 1)
Quarter: 2024Q3

REPORT INFORMATION
  Report Type: Report from Study
  Country: US (occurrence: US)
  Receive Date: 20240924
  Receipt Date: 20240924
  Transmission Date: 20241017
  Serious: Yes (Other)
  Sender: ROCHE
  Company Number: US-ROCHE-10000083235

PATIENT
  Age: 46 Year
  Sex: Male
  Weight: 95.3 kg

DRUGS (11)
  1. OCRELIZUMAB [Suspect]
     Active Substance: OCRELIZUMAB
     Indication: Multiple sclerosis
     Route: 042
  2. diclofenac sodium (VOLTAREN) 1 % Gel [Concomitant]
     Dosage: APPLY 1 APPLICATION TOPICALLY 3 TIMES A DAY AS NEEDED (JOINT PAIN).
     Dates: start: 20200914
  3. tadalafiL (CIALIS) 5 MG tablet [Concomitant]
     Dosage: 3 REFILLS BY 9/22/2023
     Route: 048
     Dates: start: 20220922
  4. cholecalciferol (VITAMIN D3) 1,250 mcg (50,000 unit) tablet [Concomitant]
     Dosage: TAKE 1 TABLET (50,000 UNITS TOTAL) BY MOUTH ONCE A WEEK.
     Route: 048
     Dates: start: 20231211
  5. dalfampridine 10 mg Tb12 [Concomitant]
     Dosage: TAKE 1 TABLET (10 MG TOTAL) BY MOUTH EVERY 12 HOURS, 3 REFILLS BY 5/12/2025
     Route: 048
     Dates: start: 20240512
  6. acetaminophen (TYLENOL) tablet [Concomitant]
     Route: 048
     Dates: start: 20240607
  7. cetirizine (ZyrTEC) tablet [Concomitant]
     Route: 048
     Dates: start: 20240607
  8. diphenhydrAMINE (BENADRYL) injection [Concomitant]
     Route: 042
     Dates: start: 20240607
  9. famotidine (PEPCID) tablet [Concomitant]
     Route: 048
     Dates: start: 20240607
  10. methylPREDNISolone sodium succinate (PF) (SOLU-Medrol) injection [Concomitant]
     Route: 042
     Dates: start: 20240607
  11. sodium chloride 0.9% (NS) [Concomitant]
     Dates: start: 20240607

REACTIONS (12)
  - Rash [Unknown]
  - JC polyomavirus test positive [Unknown]
  - Lymphocyte count decreased [Unknown]
  - Alanine aminotransferase abnormal [Unknown]
  - Blood immunoglobulin M decreased [Unknown]
  - Vitamin D decreased [Unknown]
  - CD19 lymphocytes decreased [Unknown]
  - B-lymphocyte count decreased [Unknown]
  - CD8 lymphocytes decreased [Unknown]
  - Blood glucose increased [Unknown]
  - Blood bicarbonate decreased [Unknown]
  - Blood bilirubin increased [Unknown]

NARRATIVE: CASE EVENT DATE: 20151103
